FAERS Safety Report 6338310-3 (Version None)
Quarter: 2009Q3

REPORT INFORMATION
  Report Type: 
  Country: None (occurrence: None)
  Receive Date: 20090902
  Receipt Date: 20090827
  Transmission Date: 20100115
  Serious: Yes (Hospitalization, Other)
  Sender: FDA-Public Use
  Company Number: US-ABBOTT-09P-163-0594082-00

PATIENT
  Sex: Female
  Weight: 82.628 kg

DRUGS (2)
  1. HUMIRA [Suspect]
     Indication: CROHN'S DISEASE
     Route: 058
     Dates: start: 20060101
  2. PROVIGIL [Concomitant]
     Indication: NARCOLEPSY

REACTIONS (3)
  - FLUID RETENTION [None]
  - NEPHROLITHIASIS [None]
  - PROLONGED LABOUR [None]
